FAERS Safety Report 4616047-6 (Version None)
Quarter: 2005Q1

REPORT INFORMATION
  Report Type: 
  Country: None (occurrence: None)
  Receive Date: 20050321
  Receipt Date: 20050303
  Transmission Date: 20050727
  Serious: Yes (Hospitalization)
  Sender: FDA-Public Use
  Company Number: T05-GER-01061-01

PATIENT
  Age: 20 Year
  Sex: Male

DRUGS (4)
  1. CIPRAMIL (CITALOPRAM HYDROBROMIDE) [Suspect]
     Dosage: 20 MG QD
     Dates: start: 20011114, end: 20011206
  2. RISPERDAL [Suspect]
     Dosage: 3 MG QD
     Dates: start: 20011128, end: 20011128
  3. RISPERDAL [Suspect]
     Dosage: 2 MG QD PO
     Route: 048
     Dates: start: 20011127, end: 20011127
  4. RISPERDAL [Suspect]
     Dosage: 1 MG QD PO
     Route: 048
     Dates: start: 20011126, end: 20011126

REACTIONS (2)
  - DRUG INTERACTION [None]
  - PRIAPISM [None]
